FAERS Safety Report 6688921-0 (Version None)
Quarter: 2010Q2

REPORT INFORMATION
  Report Type: 
  Country: None (occurrence: None)
  Receive Date: 20100420
  Receipt Date: 20100406
  Transmission Date: 20101027
  Serious: Yes (Other)
  Sender: FDA-Public Use
  Company Number: US-ELI_LILLY_AND_COMPANY-US201004003223

PATIENT
  Sex: Female

DRUGS (1)
  1. FORTEO [Suspect]
     Indication: OSTEOPOROSIS
     Dosage: 20 UG, UNK
     Dates: start: 20100101

REACTIONS (5)
  - INJECTION SITE PAIN [None]
  - INTENTIONAL DRUG MISUSE [None]
  - MALAISE [None]
  - MEMORY IMPAIRMENT [None]
  - SKIN CANCER [None]
